FAERS Safety Report 8000776-0 (Version None)
Quarter: 2011Q4

REPORT INFORMATION
  Report Type: 
  Country: None (occurrence: None)
  Receive Date: 20111214
  Receipt Date: 20111128
  Transmission Date: 20120403
  Serious: Yes (Life-Threatening)
  Sender: FDA-Public Use
  Company Number: JP-20110036

PATIENT
  Age: 76 Year
  Sex: Male

DRUGS (1)
  1. HEXABRIX [Suspect]
     Dates: start: 20111125, end: 20111125

REACTIONS (2)
  - SHOCK [None]
  - PLATELET COUNT DECREASED [None]
